FAERS Safety Report 4975319-6 (Version None)
Quarter: 2006Q2

REPORT INFORMATION
  Report Type: 
  Country: None (occurrence: None)
  Receive Date: 20060418
  Receipt Date: 20051215
  Transmission Date: 20061013
  Serious: Yes (Hospitalization, Other)
  Sender: FDA-Public Use
  Company Number: US-MERCK-0512USA02422

PATIENT
  Age: 50 Year
  Sex: Male
  Weight: 91 kg

DRUGS (2)
  1. VIOXX [Suspect]
     Indication: JOINT SPRAIN
     Route: 048
     Dates: start: 20010401
  2. VIOXX [Suspect]
     Indication: MUSCLE STRAIN
     Route: 048
     Dates: start: 20010401

REACTIONS (3)
  - ACUTE CORONARY SYNDROME [None]
  - MYOCARDIAL INFARCTION [None]
  - THROMBOSIS [None]
